FAERS Safety Report 20718418 (Version 1)
Quarter: 2022Q2

REPORT INFORMATION
  Report Type: Spontaneous
  Country: FR (occurrence: FR)
  Receive Date: 20220418
  Receipt Date: 20220418
  Transmission Date: 20220720
  Serious: Yes (Hospitalization, Other)
  Sender: FDA-Public Use
  Company Number: FR-LUNDBECK-DKLU3046752

PATIENT
  Sex: Male

DRUGS (2)
  1. ESCITALOPRAM OXALATE [Suspect]
     Active Substance: ESCITALOPRAM OXALATE
     Indication: Depression
     Dosage: 10 MG, QD
     Route: 065
  2. ESCITALOPRAM OXALATE [Suspect]
     Active Substance: ESCITALOPRAM OXALATE
     Dosage: 5 MG, QD
     Route: 065

REACTIONS (4)
  - Hepatic cytolysis [Recovered/Resolved]
  - Hepatitis cholestatic [Recovered/Resolved]
  - Normochromic normocytic anaemia [Unknown]
  - Off label use [Unknown]
